FAERS Safety Report 4840146-7 (Version None)
Quarter: 2005Q4

REPORT INFORMATION
  Report Type: 
  Country: None (occurrence: None)
  Receive Date: 20051125
  Receipt Date: 20051110
  Transmission Date: 20060501
  Serious: Yes (Other)
  Sender: FDA-Public Use
  Company Number: 2005154744

PATIENT
  Sex: Female
  Weight: 63.5036 kg

DRUGS (2)
  1. ROLAIDS EXTRA STRENGTH (MAGNESIUM HYDROXIDE, CALCIUM CARBONATE) [Suspect]
     Dosage: ORAL
     Route: 048
     Dates: start: 19900101
  2. PANTOPRAZOLE SODIUM [Concomitant]

REACTIONS (2)
  - GASTRIC PERFORATION [None]
  - GASTROOESOPHAGEAL REFLUX DISEASE [None]
